FAERS Safety Report 6339820-5 (Version None)
Quarter: 2009Q3

REPORT INFORMATION
  Report Type: 
  Country: None (occurrence: None)
  Receive Date: 20090903
  Receipt Date: 20090826
  Transmission Date: 20100115
  Serious: Yes (Hospitalization)
  Sender: FDA-Public Use
  Company Number: PHEH2009US09991

PATIENT
  Age: 78 Year
  Sex: Female

DRUGS (1)
  1. RECLAST [Suspect]
     Indication: OSTEOPOROSIS
     Dosage: 5 MG, ONCE/SINGLE
     Dates: start: 20090801, end: 20090801

REACTIONS (5)
  - ARTHRALGIA [None]
  - INFLUENZA LIKE ILLNESS [None]
  - MYALGIA [None]
  - URINARY TRACT INFECTION [None]
  - UROSEPSIS [None]
